FAERS Safety Report 26075114 (Version 1)
Quarter: 2025Q4

REPORT INFORMATION
  Report Type: Spontaneous
  Country: CN (occurrence: CN)
  Receive Date: 20251121
  Receipt Date: 20251121
  Transmission Date: 20260117
  Serious: Yes (Hospitalization, Other)
  Sender: Haleon PLC
  Company Number: CN-HALEON-2274751

PATIENT
  Age: 42 Year
  Sex: Male

DRUGS (2)
  1. DICLOFENAC [Suspect]
     Active Substance: DICLOFENAC
     Indication: Back pain
     Dosage: SEVERAL TIMES
  2. PRAZIQUANTEL [Suspect]
     Active Substance: PRAZIQUANTEL
     Indication: Clonorchiasis
     Dosage: TOTAL DOSE 210 MG/KG, 3 TIMES A DAY FOR 3 DAYS

REACTIONS (24)
  - Abdominal distension [Recovering/Resolving]
  - Lymphadenopathy [Recovering/Resolving]
  - Leukocytosis [Recovering/Resolving]
  - Hepatic function abnormal [Recovering/Resolving]
  - Cholecystitis [Recovering/Resolving]
  - Peritonitis [Recovering/Resolving]
  - Effusion [Recovering/Resolving]
  - Skin lesion [Recovering/Resolving]
  - Hepatorenal syndrome [Recovering/Resolving]
  - Perioral dermatitis [Recovering/Resolving]
  - Rash erythematous [Recovering/Resolving]
  - Drug reaction with eosinophilia and systemic symptoms [Recovering/Resolving]
  - Pyrexia [Recovering/Resolving]
  - Jaundice [Recovering/Resolving]
  - Ocular icterus [Recovering/Resolving]
  - Angioedema [Recovering/Resolving]
  - Dry mouth [Recovering/Resolving]
  - Oliguria [Recovering/Resolving]
  - Skin exfoliation [Recovering/Resolving]
  - Skin hyperpigmentation [Recovering/Resolving]
  - Hypersensitivity [Recovering/Resolving]
  - Acute hepatic failure [Recovering/Resolving]
  - Acute kidney injury [Recovering/Resolving]
  - Sepsis [Recovering/Resolving]
